FAERS Safety Report 9559553 (Version 2)
Quarter: 2013Q4

REPORT INFORMATION
  Report Type: Spontaneous
  Country: US (occurrence: None)
  Receive Date: 20130925
  Receipt Date: 20131108
  Transmission Date: 20140711
  Serious: Yes (Other)
  Sender: FDA-Public Use
  Company Number: ACO_38650_2013

PATIENT
  Age: 28 Year
  Sex: Female

DRUGS (14)
  1. AMPYRA (DALFAMPRIDINE) TABLET, 10MG [Suspect]
     Indication: MULTIPLE SCLEROSIS
     Dates: start: 20120814
  2. TYSABRI (NATALIZUMAB) [Suspect]
     Indication: MULTIPLE SCLEROSIS
     Dates: start: 201207, end: 201209
  3. ASPIRIN (ACETYLSALICYLIC ACID) [Concomitant]
  4. BAYER ASPIRIN (ACETYLSALICYLIC ACID) [Concomitant]
  5. COPAXONE [Suspect]
     Indication: MULTIPLE SCLEROSIS
     Dates: start: 201205, end: 201305
  6. DIMETHYL FUMARATE [Suspect]
     Indication: MULTIPLE SCLEROSIS
     Dates: start: 201209, end: 201210
  7. OTHER THERAPEUTIC PRODUCTS [Suspect]
  8. CELEBREX (CELECOXIB) [Concomitant]
  9. FEXOFENADINE (FEXOFENADINE HYDROCHLORIDE) [Concomitant]
  10. MECLIZINE HCL (MECLOZINE HYDROCHLORIDE) [Concomitant]
  11. OMEGA 3-6-9 (FISH OIL, TOCOPHEROL) [Concomitant]
  12. POLYETHYLENE GLYCOL (MACROGOL) [Concomitant]
  13. PRENATAL VITAMINS (ASCORBIC ACID, BIOTIN, MINERALS NOS, NICOTINIC ACID, RETINOL, TOCOPHEROL, VITAMIN B NOS, VITAMIN D NOS) [Concomitant]
  14. VITAMIN D3 [Concomitant]

REACTIONS (27)
  - Urinary retention [None]
  - Diplopia [None]
  - Vision blurred [None]
  - Sinus disorder [None]
  - Pollakiuria [None]
  - Pruritus [None]
  - Hypoaesthesia [None]
  - Arthralgia [None]
  - Neck pain [None]
  - Temperature intolerance [None]
  - Fatigue [None]
  - Seasonal allergy [None]
  - Eye pain [None]
  - Depressed mood [None]
  - Micturition urgency [None]
  - Defaecation urgency [None]
  - Dizziness [None]
  - Headache [None]
  - Back pain [None]
  - Paraesthesia [None]
  - Asthenia [None]
  - Gait disturbance [None]
  - Walking aid user [None]
  - Mood swings [None]
  - Condition aggravated [None]
  - Memory impairment [None]
  - Insomnia [None]
